FAERS Safety Report 17893268 (Version 1)
Quarter: 2020Q2

REPORT INFORMATION
  Report Type: Report from Study
  Country: None (occurrence: US)
  Receive Date: 20200614
  Receipt Date: 20200614
  Transmission Date: 20200714
  Serious: Yes (Other)
  Sender: FDA-Public Use
  Company Number: US-ABBVIE-20K-163-3442420-00

PATIENT
  Sex: Female

DRUGS (1)
  1. HUMIRA [Suspect]
     Active Substance: ADALIMUMAB
     Indication: RHEUMATOID ARTHRITIS
     Route: 058

REACTIONS (8)
  - Cholecystectomy [Recovered/Resolved]
  - Cough [Not Recovered/Not Resolved]
  - Neck pain [Not Recovered/Not Resolved]
  - Toe amputation [Recovered/Resolved]
  - Nodule [Recovered/Resolved]
  - Nail operation [Recovered/Resolved]
  - Tendon operation [Recovered/Resolved]
  - Back pain [Not Recovered/Not Resolved]
